FAERS Safety Report 9887486 (Version 1)
Quarter: 2013Q4

REPORT INFORMATION
  Report Type: Spontaneous
  Country: US (occurrence: None)
  Receive Date: 20131223
  Receipt Date: 20131223
  Transmission Date: 20140711
  Serious: Yes (Other)
  Sender: FDA-Public Use
  Company Number: 220794LEO

PATIENT
  Age: 64 Year
  Sex: Male

DRUGS (1)
  1. PICATO [Suspect]
     Indication: ACTINIC KERATOSIS
     Dosage: (ONCE DAILY FOR 3 DSAYS)
     Dates: start: 20130227, end: 20130301

REACTIONS (4)
  - Lacrimation increased [None]
  - Eye oedema [None]
  - Drug administered at inappropriate site [None]
  - Accidental exposure to product [None]
